FAERS Safety Report 4943823-2 (Version None)
Quarter: 2006Q1

REPORT INFORMATION
  Report Type: 
  Country: None (occurrence: None)
  Receive Date: 20060310
  Receipt Date: 20060222
  Transmission Date: 20060701
  Serious: Yes (Hospitalization)
  Sender: FDA-Public Use
  Company Number: DSA_27826_2006

PATIENT
  Age: 82 Year
  Sex: Female
  Weight: 35 kg

DRUGS (9)
  1. RENIVACE [Suspect]
     Indication: HYPERTENSION
     Dosage: 10 MG QD PO
     Route: 048
     Dates: end: 20060110
  2. ARTIST [Suspect]
     Indication: HYPERTENSION
     Dosage: 10 MG QD PO
     Route: 048
     Dates: end: 20060110
  3. ASPIRIN [Suspect]
     Indication: ANGINA PECTORIS
     Dosage: 100 MG QD PO
     Route: 048
     Dates: end: 20060110
  4. NORVASC /00972401/ [Concomitant]
  5. DIART [Concomitant]
  6. NITOROL R [Concomitant]
  7. MUCOSTA [Concomitant]
  8. GLUCOSE [Concomitant]
  9. HYDROCORTISONE SODIUM SUCCINATE [Concomitant]

REACTIONS (7)
  - ASTHENIA [None]
  - BLOOD GLUCOSE INCREASED [None]
  - BLOOD INSULIN INCREASED [None]
  - COLD SWEAT [None]
  - DISCOMFORT [None]
  - HYPOGLYCAEMIA [None]
  - TREMOR [None]
